FAERS Safety Report 6899389-3 (Version None)
Quarter: 2010Q3

REPORT INFORMATION
  Report Type: 
  Country: None (occurrence: None)
  Receive Date: 20100803
  Receipt Date: 20090507
  Transmission Date: 20110219
  Serious: No
  Sender: FDA-Public Use
  Company Number: US-PFIZER INC-2009188126

PATIENT
  Sex: Female

DRUGS (2)
  1. NORVASC [Suspect]
  2. TEGRETOL [Interacting]
     Indication: TRIGEMINAL NEURALGIA

REACTIONS (2)
  - DRUG INTERACTION [None]
  - TRIGEMINAL NEURALGIA [None]
